FAERS Safety Report 7802793-X (Version None)
Quarter: 2011Q4

REPORT INFORMATION
  Report Type: 
  Country: None (occurrence: None)
  Receive Date: 20111007
  Receipt Date: 20111003
  Transmission Date: 20120403
  Serious: Yes (Hospitalization, Other)
  Sender: FDA-Public Use
  Company Number: VE-PFIZER INC-2011193869

PATIENT
  Age: 54 Year
  Sex: Male

DRUGS (1)
  1. ZOLOFT [Suspect]
     Indication: AMNESIA
     Dosage: UNK
     Route: 048
     Dates: start: 20110201, end: 20110201

REACTIONS (2)
  - CARDIAC DISORDER [None]
  - CONVULSION [None]
